FAERS Safety Report 6687706-9 (Version None)
Quarter: 2010Q2

REPORT INFORMATION
  Report Type: 
  Country: None (occurrence: None)
  Receive Date: 20100420
  Receipt Date: 20100412
  Transmission Date: 20101027
  Serious: Yes (Other)
  Sender: FDA-Public Use
  Company Number: US-ASTRAZENECA-2009SE13030

PATIENT
  Sex: Male

DRUGS (5)
  1. SEROQUEL [Suspect]
     Dosage: 200 MG IN THE MORNING AND 600 MG IN THE EVENING
     Route: 048
     Dates: start: 20030101
  2. LOXITANE [Concomitant]
     Route: 048
     Dates: start: 20030101
  3. RISPERDAL [Concomitant]
     Route: 048
     Dates: start: 20030101
  4. HYDROCHLOROTHIAZIDE [Concomitant]
     Route: 048
     Dates: start: 20030101
  5. PLENDIL [Concomitant]
     Route: 048
     Dates: start: 20030101

REACTIONS (3)
  - DIABETES MELLITUS [None]
  - DIABETIC HYPEROSMOLAR COMA [None]
  - NEPHROGENIC DIABETES INSIPIDUS [None]
